FAERS Safety Report 8331188-8 (Version None)
Quarter: 2012Q2

REPORT INFORMATION
  Report Type: 
  Country: None (occurrence: None)
  Receive Date: 20120502
  Receipt Date: 20120412
  Transmission Date: 20120825
  Serious: No
  Sender: FDA-Public Use
  Company Number: US-AMGEN-USASP2012021703

PATIENT
  Age: 43 Year
  Sex: Female

DRUGS (2)
  1. ENBREL [Suspect]
     Indication: PSORIATIC ARTHROPATHY
  2. ENBREL [Suspect]
     Indication: PSORIASIS
     Dosage: 25 MG, QWK
     Route: 058
     Dates: start: 20040201

REACTIONS (6)
  - NERVE INJURY [None]
  - DRUG INEFFECTIVE [None]
  - PSORIASIS [None]
  - THERAPEUTIC RESPONSE DECREASED [None]
  - WRONG TECHNIQUE IN DRUG USAGE PROCESS [None]
  - INJECTION SITE PAIN [None]
